FAERS Safety Report 7920707-9 (Version None)
Quarter: 2011Q4

REPORT INFORMATION
  Report Type: 
  Country: None (occurrence: None)
  Receive Date: 20111117
  Receipt Date: 20111107
  Transmission Date: 20120403
  Serious: Yes (Other)
  Sender: FDA-Public Use
  Company Number: US-JNJFOC-20111103104

PATIENT
  Sex: Male
  Weight: 106.6 kg

DRUGS (5)
  1. REMICADE [Suspect]
     Route: 042
     Dates: start: 20060101, end: 20070101
  2. REMICADE [Suspect]
     Indication: RHEUMATOID ARTHRITIS
     Route: 042
     Dates: start: 20060901, end: 20060101
  3. REMICADE [Suspect]
     Route: 042
     Dates: start: 20070101
  4. BLOOD PRESSURE MEDICATION NOS [Concomitant]
     Indication: HYPERTENSION
     Route: 048
  5. HYDROCODONE BITARTRATE [Concomitant]
     Indication: PAIN
     Dosage: ^1.75 MG/500 MG TABLET/ 1.75 MG/500 MG/ AS NEEDED/ORAL^
     Route: 048
     Dates: start: 20060501

REACTIONS (6)
  - BACK PAIN [None]
  - NERVE COMPRESSION [None]
  - DRUG INEFFECTIVE [None]
  - CONDITION AGGRAVATED [None]
  - ARTHRALGIA [None]
  - PRODUCT QUALITY ISSUE [None]
